FAERS Safety Report 7239122-9 (Version None)
Quarter: 2011Q1

REPORT INFORMATION
  Report Type: 
  Country: None (occurrence: None)
  Receive Date: 20110121
  Receipt Date: 20110119
  Transmission Date: 20110831
  Serious: Yes (Hospitalization, Other)
  Sender: FDA-Public Use
  Company Number: US-PFIZER INC-2011008697

PATIENT
  Sex: Male

DRUGS (1)
  1. SUTENT [Suspect]
     Indication: METASTATIC RENAL CELL CARCINOMA
     Dosage: 50 MG, DAILY X 14 DAYS Q 21 DAYS
     Dates: start: 20101214, end: 20110111

REACTIONS (3)
  - PLATELET COUNT DECREASED [None]
  - HAEMATOCHEZIA [None]
  - WHITE BLOOD CELL COUNT DECREASED [None]
